FAERS Safety Report 18380023 (Version 2)
Quarter: 2022Q1

REPORT INFORMATION
  Report Type: Spontaneous
  Country: JP (occurrence: JP)
  Receive Date: 20201014
  Receipt Date: 20220201
  Transmission Date: 20220423
  Serious: Yes (Death, Other)
  Sender: FDA-Public Use
  Company Number: JP-SERVIER-S20010210

PATIENT
  Age: 75 Year
  Sex: Male
  Weight: 42.3 kg

DRUGS (1)
  1. IVABRADINE HYDROCHLORIDE [Suspect]
     Active Substance: IVABRADINE HYDROCHLORIDE
     Indication: Cardiac failure chronic
     Dosage: 2.5 MG, BID
     Route: 048
     Dates: start: 20200917

REACTIONS (1)
  - Death [Fatal]

NARRATIVE: CASE EVENT DATE: 20200930
